FAERS Safety Report 8422693-4 (Version None)
Quarter: 2012Q2

REPORT INFORMATION
  Report Type: 
  Country: None (occurrence: None)
  Receive Date: 20120608
  Receipt Date: 20120530
  Transmission Date: 20120825
  Serious: Yes (Hospitalization, Other)
  Sender: FDA-Public Use
  Company Number: US-JNJFOC-20120314496

PATIENT
  Sex: Female
  Weight: 79.38 kg

DRUGS (27)
  1. REMICADE [Suspect]
     Indication: RHEUMATOID ARTHRITIS
     Route: 042
     Dates: start: 20100222, end: 20120207
  2. MELOXICAM [Concomitant]
     Indication: RHEUMATOID ARTHRITIS
     Route: 048
     Dates: start: 20100101, end: 20120522
  3. METOPROLOL SUCCINATE EXTENDED RELEASE [Concomitant]
     Indication: BLOOD PRESSURE
     Route: 065
     Dates: start: 20120321
  4. AMIODARONE HCL [Suspect]
     Indication: ARRHYTHMIA
     Route: 065
     Dates: start: 20110714, end: 20120301
  5. METOPROLOL SUCCINATE EXTENDED RELEASE [Concomitant]
     Indication: CARDIAC DISORDER
     Route: 065
     Dates: start: 20120321
  6. METHOTREXATE [Suspect]
     Indication: RHEUMATOID ARTHRITIS
     Dosage: 10 A WEEK
     Route: 065
     Dates: end: 20120321
  7. ALENDRONATE SODIUM [Concomitant]
     Indication: BONE DISORDER
     Route: 048
     Dates: end: 20120522
  8. OMEPRAZOLE [Concomitant]
     Indication: GASTROOESOPHAGEAL REFLUX DISEASE
     Route: 048
     Dates: start: 20100101
  9. GLUCOSAMINE [Concomitant]
     Indication: INTERVERTEBRAL DISC DEGENERATION
     Route: 048
     Dates: start: 20090101
  10. LEVOTHYROXINE SODIUM [Concomitant]
     Indication: HYPOTHYROIDISM
     Dosage: REPORTED THAT THE PATIENT HAD BEEN ON APPROXIMATELY FOR 40 YEARS
     Route: 048
     Dates: start: 19820101
  11. GLUCOSAMINE [Concomitant]
     Indication: ARTHROPATHY
     Route: 048
     Dates: start: 20090101
  12. HYDROXYCHLOROQUINE SULFATE [Concomitant]
     Indication: ARTHRALGIA
     Route: 065
     Dates: start: 20120417
  13. VIACTIV WITH D [Concomitant]
     Indication: MINERAL SUPPLEMENTATION
     Route: 065
     Dates: start: 20080101
  14. REMICADE [Suspect]
     Route: 042
     Dates: end: 20120321
  15. AMIODARONE HCL [Suspect]
     Indication: ATRIAL FIBRILLATION
     Route: 065
     Dates: start: 20110714, end: 20120301
  16. LIDODERM [Concomitant]
     Indication: BACK PAIN
     Route: 062
     Dates: start: 20111101
  17. DIOVAN HCT [Concomitant]
     Indication: BLOOD PRESSURE
     Dosage: 320/25 MG
     Route: 065
     Dates: start: 20110714, end: 20120321
  18. FLUTICASONE FUROATE [Concomitant]
     Indication: SINUS DISORDER
     Route: 045
     Dates: start: 20100401
  19. ARTHRITIS TYLENOL [Concomitant]
     Indication: PAIN
     Route: 065
     Dates: start: 20090101
  20. MELOXICAM [Concomitant]
     Indication: PAIN
     Route: 048
     Dates: start: 20100101, end: 20120522
  21. OMEPRAZOLE [Concomitant]
     Route: 048
     Dates: start: 20090101
  22. OMEPRAZOLE [Concomitant]
     Indication: HIATUS HERNIA
     Route: 048
     Dates: start: 20100101
  23. OMEPRAZOLE [Concomitant]
     Route: 048
     Dates: start: 20090101
  24. FOLIC ACID [Concomitant]
     Route: 065
     Dates: end: 20120321
  25. METHYLDOPA [Concomitant]
     Indication: ANTICOAGULANT THERAPY
     Route: 065
     Dates: start: 20120423
  26. LIDODERM [Concomitant]
     Indication: INTERVERTEBRAL DISC PROTRUSION
     Route: 062
     Dates: start: 20111101
  27. WOMEN'S ONE A DAY [Concomitant]
     Route: 065
     Dates: start: 20020101

REACTIONS (7)
  - ATRIAL FIBRILLATION [None]
  - PULMONARY FIBROSIS [None]
  - ADVERSE EVENT [None]
  - PNEUMONIA [None]
  - RENAL FAILURE [None]
  - PULMONARY OEDEMA [None]
  - SINUSITIS [None]
